FAERS Safety Report 24747079 (Version 5)
Quarter: 2025Q3

REPORT INFORMATION
  Report Type: Report from Study
  Country: EU (occurrence: EU)
  Receive Date: 20241218
  Receipt Date: 20250716
  Transmission Date: 20251020
  Serious: No
  Sender: BRISTOL-MYERS SQUIBB COMPANY
  Company Number: EU-BRISTOL-MYERS SQUIBB COMPANY-2024-191307

PATIENT
  Age: 34 Year
  Sex: Female

DRUGS (7)
  1. ZEPOSIA [Suspect]
     Active Substance: OZANIMOD HYDROCHLORIDE
     Indication: Relapsing-remitting multiple sclerosis
     Route: 048
     Dates: start: 202104, end: 20240225
  2. ERGOCALCIFEROL [Concomitant]
     Active Substance: ERGOCALCIFEROL
     Indication: Prophylaxis
     Route: 048
     Dates: start: 2009
  3. BOOSTRIX [Concomitant]
     Active Substance: TETANUS TOXOID, REDUCED DIPHTHERIA TOXOID AND ACELLULAR PERTUSSIS VACCINE ADSORBED, TDAP
     Indication: Prophylaxis
     Route: 030
     Dates: start: 20241014, end: 20241014
  4. MINERALS\VITAMINS [Concomitant]
     Active Substance: MINERALS\VITAMINS
     Indication: Pregnancy
     Route: 048
     Dates: start: 202402
  5. CAFFEINE [Concomitant]
     Active Substance: CAFFEINE
     Indication: Product used for unknown indication
  6. LEVOTHYROXINE SODIUM [Concomitant]
     Active Substance: LEVOTHYROXINE SODIUM
     Indication: Graves^ disease
     Dosage: 150+100 MG ALTERNATIVELY
     Route: 048
     Dates: start: 202403
  7. LEVOTHYROXINE SODIUM [Concomitant]
     Active Substance: LEVOTHYROXINE SODIUM
     Dosage: 100+50 MG ALTERNATIVELY
     Route: 048
     Dates: start: 2012, end: 202403

REACTIONS (5)
  - Maternal exposure during pregnancy [Recovered/Resolved]
  - Normal newborn [Unknown]
  - Urinary tract infection bacterial [Recovered/Resolved]
  - COVID-19 [Recovered/Resolved]
  - Pregnancy with contraceptive device [Unknown]

NARRATIVE: CASE EVENT DATE: 20240527
